FAERS Safety Report 24827583 (Version 1)
Quarter: 2025Q1

REPORT INFORMATION
  Report Type: Spontaneous
  Country: SE (occurrence: SE)
  Receive Date: 20250109
  Receipt Date: 20250109
  Transmission Date: 20250408
  Serious: Yes (Hospitalization)
  Sender: MYLAN
  Company Number: None

PATIENT
  Age: 91 Year
  Sex: Female

DRUGS (1)
  1. BUPRENORPHINE [Suspect]
     Active Substance: BUPRENORPHINE
     Indication: Analgesic therapy
     Route: 065
     Dates: end: 202412

REACTIONS (5)
  - Altered state of consciousness [Recovered/Resolved]
  - Chest pain [Unknown]
  - Fall [Recovered/Resolved]
  - Confusional state [Recovered/Resolved]
  - Disorganised speech [Unknown]

NARRATIVE: CASE EVENT DATE: 20241201
